FAERS Safety Report 7240356-8 (Version None)
Quarter: 2011Q1

REPORT INFORMATION
  Report Type: 
  Country: None (occurrence: None)
  Receive Date: 20110119
  Receipt Date: 20110119
  Transmission Date: 20110831
  Serious: Yes (Hospitalization)
  Sender: FDA-Public Use
  Company Number: None

PATIENT
  Sex: Male
  Weight: 18 kg

DRUGS (1)
  1. AMOXICILLIN [Suspect]
     Indication: OTITIS MEDIA
     Dates: start: 20101109, end: 20101116

REACTIONS (8)
  - OEDEMA PERIPHERAL [None]
  - MOBILITY DECREASED [None]
  - URTICARIA [None]
  - SERUM SICKNESS-LIKE REACTION [None]
  - ARTHRALGIA [None]
  - LETHARGY [None]
  - PAIN IN EXTREMITY [None]
  - PYREXIA [None]
